FAERS Safety Report 4999184-6 (Version None)
Quarter: 2006Q2

REPORT INFORMATION
  Report Type: 
  Country: None (occurrence: None)
  Receive Date: 20060509
  Receipt Date: 20060426
  Transmission Date: 20061013
  Serious: Yes (Other)
  Sender: FDA-Public Use
  Company Number: 2006052007

PATIENT
  Age: 31 Year
  Sex: Male

DRUGS (3)
  1. CLINDAMYCIN HYDROCHLORIDE [Suspect]
     Indication: INFECTION
     Dosage: 1200 MG (300 MG, 1 IN 6 HR), ORAL
     Route: 048
     Dates: start: 20060301
  2. BENADRYL [Suspect]
     Indication: ADVERSE DRUG REACTION
     Dosage: TWO TO THREE TABLETS ORAL
     Route: 048
     Dates: start: 20060402, end: 20060402
  3. DEXAMETHASONE [Suspect]
     Indication: ADVERSE DRUG REACTION
     Dosage: INTRAVENOUS
     Route: 042

REACTIONS (10)
  - ABDOMINAL DISCOMFORT [None]
  - AMNESIA [None]
  - ASTHENIA [None]
  - FATIGUE [None]
  - HYPOTENSION [None]
  - LOSS OF CONSCIOUSNESS [None]
  - PALLOR [None]
  - PHARYNGEAL OEDEMA [None]
  - SENSORY DISTURBANCE [None]
  - SEXUAL DYSFUNCTION [None]
